FAERS Safety Report 5449068-4 (Version None)
Quarter: 2007Q3

REPORT INFORMATION
  Report Type: 
  Country: None (occurrence: None)
  Receive Date: 20070911
  Receipt Date: 20070904
  Transmission Date: 20080115
  Serious: Yes (Other)
  Sender: FDA-Public Use
  Company Number: US-JNJFOC-20070900769

PATIENT
  Sex: Male
  Weight: 74.84 kg

DRUGS (10)
  1. LEVAQUIN [Suspect]
     Indication: DIVERTICULITIS
     Route: 048
  2. FLAGYL [Concomitant]
     Indication: DIVERTICULITIS
     Route: 065
  3. NORVASC [Concomitant]
     Indication: HYPERTENSION
     Route: 065
  4. AMIODARONE HCL [Concomitant]
     Indication: TACHYCARDIA
     Route: 065
  5. COZAAR [Concomitant]
     Indication: CARDIAC DISORDER
     Route: 065
  6. ASPIRIN [Concomitant]
     Indication: CARDIAC DISORDER
     Route: 065
  7. HYDRIN [Concomitant]
     Indication: PROSTATIC DISORDER
     Route: 065
  8. LASIX [Concomitant]
     Indication: BLOOD PRESSURE
     Route: 065
  9. NIACIN [Concomitant]
     Indication: LIPIDS
     Route: 065
  10. LIPITOR [Concomitant]
     Indication: BLOOD CHOLESTEROL
     Route: 065

REACTIONS (2)
  - MUSCULAR WEAKNESS [None]
  - PAIN IN EXTREMITY [None]
